FAERS Safety Report 19420400 (Version 1)
Quarter: 2021Q2

REPORT INFORMATION
  Report Type: Spontaneous
  Country: US (occurrence: US)
  Receive Date: 20210615
  Receipt Date: 20210615
  Transmission Date: 20210717
  Serious: Yes (Hospitalization)
  Sender: FDA-Public Use
  Company Number: US-BAUSCH-BL-2021-019955

PATIENT
  Age: 19 Year
  Sex: Female

DRUGS (5)
  1. QUETIAPINE. [Concomitant]
     Active Substance: QUETIAPINE
     Indication: PRODUCT USED FOR UNKNOWN INDICATION
     Route: 065
  2. HALOPERIDOL. [Concomitant]
     Active Substance: HALOPERIDOL
     Route: 030
  3. HALOPERIDOL. [Concomitant]
     Active Substance: HALOPERIDOL
     Indication: PRODUCT USED FOR UNKNOWN INDICATION
  4. QUETIAPINE. [Concomitant]
     Active Substance: QUETIAPINE
     Route: 065
  5. DIAZEPAM. [Suspect]
     Active Substance: DIAZEPAM
     Indication: PRODUCT USED FOR UNKNOWN INDICATION
     Route: 065

REACTIONS (10)
  - Dysphagia [Recovering/Resolving]
  - Hyperhidrosis [Recovering/Resolving]
  - Nuchal rigidity [Recovering/Resolving]
  - Odynophagia [Recovering/Resolving]
  - Withdrawal syndrome [Recovering/Resolving]
  - Drug screen positive [Recovering/Resolving]
  - Muscle rigidity [Recovering/Resolving]
  - White blood cell count increased [Recovered/Resolved]
  - Tachycardia [Recovering/Resolving]
  - Hypertension [Recovering/Resolving]
